FAERS Safety Report 23159430 (Version 2)
Quarter: 2023Q4

REPORT INFORMATION
  Report Type: Spontaneous
  Country: CN (occurrence: CN)
  Receive Date: 20231108
  Receipt Date: 20231218
  Transmission Date: 20240110
  Serious: Yes (Other)
  Sender: FDA-Public Use
  Company Number: CN-CSTONE PHARMACEUTICALS (SUZHOU) CO., LTD.-2023CN01451

PATIENT
  Age: 53 Year
  Sex: Female

DRUGS (9)
  1. AYVAKIT [Suspect]
     Active Substance: AVAPRITINIB
     Indication: Acute myeloid leukaemia
     Dosage: 200 MILLIGRAM PER DAY
     Route: 048
     Dates: start: 20221115, end: 20221121
  2. VENCLEXTA [Suspect]
     Active Substance: VENETOCLAX
     Indication: Acute myeloid leukaemia
     Dosage: UNK, UNKNOWN
     Route: 065
     Dates: start: 20211201
  3. VENCLEXTA [Suspect]
     Active Substance: VENETOCLAX
     Dosage: UNK UNK, UNKNOWN
     Route: 065
     Dates: start: 20220103
  4. VENCLEXTA [Suspect]
     Active Substance: VENETOCLAX
     Dosage: UNK UNK, UNKNOWN
     Route: 065
     Dates: start: 20220215
  5. VENCLEXTA [Suspect]
     Active Substance: VENETOCLAX
     Dosage: UNK UNK, UNKNOWN
     Route: 065
     Dates: start: 202204
  6. VENCLEXTA [Suspect]
     Active Substance: VENETOCLAX
     Dosage: UNK UNK, UNKNOWN
     Route: 065
     Dates: start: 20220920
  7. VENCLEXTA [Suspect]
     Active Substance: VENETOCLAX
     Dosage: 100 MG ON DAY 1, 200 MG ON DAY 2, 400 MG ON DAY 3-28
     Route: 065
     Dates: start: 20221023, end: 20221119
  8. VENCLEXTA [Suspect]
     Active Substance: VENETOCLAX
     Dosage: UNK UNK, UNKNOWN
     Route: 065
     Dates: start: 20221101
  9. VENCLEXTA [Suspect]
     Active Substance: VENETOCLAX
     Dosage: 100 MG ON DAY 1, 200 MG ON DAY 2, 400 MG ON DAY 3-28
     Route: 065
     Dates: start: 20221115, end: 20221213

REACTIONS (8)
  - Myelosuppression [Recovering/Resolving]
  - Myelodysplastic syndrome [Recovering/Resolving]
  - Haematochezia [Unknown]
  - Hyperpyrexia [Unknown]
  - Blood blister [Unknown]
  - Pulmonary mass [Unknown]
  - COVID-19 [Unknown]
  - Off label use [Unknown]

NARRATIVE: CASE EVENT DATE: 20221115
